FAERS Safety Report 5455537-3 (Version None)
Quarter: 2007Q3

REPORT INFORMATION
  Report Type: 
  Country: None (occurrence: None)
  Receive Date: 20070918
  Receipt Date: 20070531
  Transmission Date: 20080115
  Serious: Yes (Other)
  Sender: FDA-Public Use
  Company Number: US-ASTRAZENECA-2006UW21774

PATIENT
  Sex: Male
  Weight: 95.5 kg

DRUGS (6)
  1. SEROQUEL [Suspect]
     Route: 048
     Dates: start: 20050114
  2. NAVANE [Concomitant]
  3. RISPERDAL [Concomitant]
  4. STELAZINE [Concomitant]
  5. THORAZINE [Concomitant]
  6. MELLARIL [Concomitant]

REACTIONS (4)
  - ACTIVITIES OF DAILY LIVING IMPAIRED [None]
  - HYPERGLYCAEMIA [None]
  - PANCREATITIS [None]
  - TARDIVE DYSKINESIA [None]
